FAERS Safety Report 10178560 (Version 1)
Quarter: 2014Q2

REPORT INFORMATION
  Report Type: Spontaneous
  Country: US (occurrence: None)
  Receive Date: 20140516
  Receipt Date: 20140516
  Transmission Date: 20141212
  Serious: Yes (Disabling)
  Sender: FDA-Public Use
  Company Number: None

PATIENT
  Age: 49 Year
  Sex: Female
  Weight: 65.77 kg

DRUGS (1)
  1. LEVOFLOXACIN [Suspect]
     Dosage: I PILL PER ORALLY FOR 9 DA

REACTIONS (7)
  - Pain in extremity [None]
  - Paraesthesia [None]
  - Tremor [None]
  - Musculoskeletal pain [None]
  - Muscular weakness [None]
  - Muscle strain [None]
  - Arthropathy [None]
